FAERS Safety Report 4938823-2 (Version None)
Quarter: 2006Q1

REPORT INFORMATION
  Report Type: 
  Country: None (occurrence: None)
  Receive Date: 20060131
  Receipt Date: 20051212
  Transmission Date: 20060701
  Serious: No
  Sender: FDA-Public Use
  Company Number: 200520499US

PATIENT

DRUGS (5)
  1. KETEK [Suspect]
  2. FLUTICASONE PROPIONATE, SALMETEROL XINAFOATE (ADVAIR) [Concomitant]
  3. MONTELUKAST SODIUM [Concomitant]
  4. IPRATROPIUM BROMIDE, SALBUTAMOL SULFATE (COMBIVENT) [Concomitant]
  5. ASPIRIN [Concomitant]

REACTIONS (1)
  - HEPATIC ENZYME INCREASED [None]
